FAERS Safety Report 14210248 (Version 1)
Quarter: 2017Q4

REPORT INFORMATION
  Report Type: Spontaneous
  Country: CO (occurrence: CO)
  Receive Date: 20171121
  Receipt Date: 20171121
  Transmission Date: 20180321
  Serious: Yes (Other)
  Sender: FDA-Public Use
  Company Number: CO-PFIZER INC-2017499300

PATIENT
  Age: 50 Year
  Sex: Male

DRUGS (1)
  1. GENOTROPIN [Suspect]
     Active Substance: SOMATROPIN
     Dosage: UNK (MG)
     Route: 058
     Dates: start: 2016

REACTIONS (3)
  - Arthropathy [Unknown]
  - Depression [Unknown]
  - Lower limb fracture [Unknown]
